FAERS Safety Report 4964813-X (Version None)
Quarter: 2006Q2

REPORT INFORMATION
  Report Type: 
  Country: None (occurrence: None)
  Receive Date: 20060403
  Receipt Date: 20060322
  Transmission Date: 20061013
  Serious: Yes (Hospitalization, Other)
  Sender: FDA-Public Use
  Company Number: JPKYO-S-20060017-V001

PATIENT
  Age: 64 Year
  Sex: Female

DRUGS (2)
  1. NAVELBINE [Suspect]
     Indication: LUNG NEOPLASM MALIGNANT
     Route: 042
     Dates: start: 20040801
  2. IRESSA [Concomitant]

REACTIONS (1)
  - DISORIENTATION [None]
